FAERS Safety Report 4407382-5 (Version None)
Quarter: 2004Q3

REPORT INFORMATION
  Report Type: 
  Country: None (occurrence: None)
  Receive Date: 20040723
  Receipt Date: 20040723
  Transmission Date: 20050211
  Serious: Yes (Life-Threatening)
  Sender: FDA-Public Use
  Company Number: None

PATIENT
  Age: 63 Year
  Sex: Female

DRUGS (4)
  1. SPIRONOLACTONE [Suspect]
     Dosage: 25MG PO DAILY
     Dates: end: 20040717
  2. LISINOPRIL [Suspect]
     Dates: end: 20040717
  3. SPIRONOLACTONE [Concomitant]
  4. LISINOPRIL [Concomitant]

REACTIONS (8)
  - DEHYDRATION [None]
  - DIARRHOEA [None]
  - HAEMODIALYSIS [None]
  - HYPERKALAEMIA [None]
  - NAUSEA [None]
  - RENAL FAILURE ACUTE [None]
  - VENTRICULAR FIBRILLATION [None]
  - VOMITING [None]
